FAERS Safety Report 4283397-5 (Version None)
Quarter: 2004Q1

REPORT INFORMATION
  Report Type: 
  Country: None (occurrence: None)
  Receive Date: 20040115
  Receipt Date: 20031003
  Transmission Date: 20041129
  Serious: Yes (Death)
  Sender: FDA-Public Use
  Company Number: US-JNJFOC-20030902718

PATIENT
  Sex: Female
  Weight: 66.2252 kg

DRUGS (1)
  1. DOXIL [Suspect]
     Indication: MULTIPLE MYELOMA
     Dosage: 48 MG, INTRAVENOUS
     Route: 042
     Dates: start: 20030224, end: 20030224

REACTIONS (1)
  - DISEASE PROGRESSION [None]
